FAERS Safety Report 25763495 (Version 2)
Quarter: 2025Q4

REPORT INFORMATION
  Report Type: Spontaneous
  Country: US (occurrence: US)
  Receive Date: 20250905
  Receipt Date: 20251030
  Transmission Date: 20260117
  Serious: Yes (Hospitalization)
  Sender: TEVA
  Company Number: US-TEVA-VS-3368902

PATIENT
  Age: 50 Year
  Sex: Male
  Weight: 112.94 kg

DRUGS (6)
  1. HYDROCHLOROTHIAZIDE\VALSARTAN [Suspect]
     Active Substance: HYDROCHLOROTHIAZIDE\VALSARTAN
     Indication: Hypertension
     Dosage: 80 MG/12.5 MG
     Route: 065
     Dates: start: 20160325, end: 20190303
  2. HYDROCHLOROTHIAZIDE\VALSARTAN [Suspect]
     Active Substance: HYDROCHLOROTHIAZIDE\VALSARTAN
     Indication: Hypertension
     Dosage: AUROBINDO (80 MG/12.5 MG)
     Route: 065
     Dates: start: 20190411, end: 20200116
  3. IBUPROFEN [Concomitant]
     Active Substance: IBUPROFEN
     Indication: Pain
     Route: 065
  4. BENADRYL [Concomitant]
     Active Substance: DIPHENHYDRAMINE HYDROCHLORIDE
     Indication: Hypersensitivity
     Route: 065
     Dates: start: 2019
  5. VICKS DAYQUIL [Concomitant]
     Active Substance: DEXTROMETHORPHAN HYDROBROMIDE\GUAIFENESIN
     Indication: Nasopharyngitis
     Dosage: DOSAGE AND FREQUENCY: AS NEEDED
     Route: 065
     Dates: start: 2019
  6. ASPIRIN [Concomitant]
     Active Substance: ASPIRIN
     Indication: Pain
     Route: 065
     Dates: start: 2019

REACTIONS (1)
  - Adenocarcinoma of colon [Recovered/Resolved]

NARRATIVE: CASE EVENT DATE: 20221018
